FAERS Safety Report 6841755-6 (Version None)
Quarter: 2010Q3

REPORT INFORMATION
  Report Type: 
  Country: None (occurrence: None)
  Receive Date: 20100714
  Receipt Date: 20070713
  Transmission Date: 20110219
  Serious: Yes (Other)
  Sender: FDA-Public Use
  Company Number: US-PFIZER INC-2007058896

PATIENT
  Sex: Female
  Weight: 73.636 kg

DRUGS (10)
  1. CHANTIX [Suspect]
     Indication: SMOKING CESSATION THERAPY
     Dosage: EVERYDAY
     Dates: start: 20070705
  2. ASTHALIN [Concomitant]
  3. ADVAIR DISKUS 100/50 [Concomitant]
  4. ALL OTHER THERAPEUTIC PRODUCTS [Concomitant]
  5. ATENOLOL [Concomitant]
  6. ACETYLSALICYLIC ACID [Concomitant]
  7. CELEXA [Concomitant]
  8. LISINOPRIL [Concomitant]
  9. ZYRTEC [Concomitant]
  10. TRICOR [Concomitant]

REACTIONS (4)
  - DYSPNOEA [None]
  - FATIGUE [None]
  - NAUSEA [None]
  - SOMNOLENCE [None]
